FAERS Safety Report 17876791 (Version 1)
Quarter: 2020Q2

REPORT INFORMATION
  Report Type: Spontaneous
  Country: US (occurrence: US)
  Receive Date: 20200609
  Receipt Date: 20200609
  Transmission Date: 20200714
  Serious: No
  Sender: FDA-Public Use
  Company Number: US-SA-2020SA146983

PATIENT

DRUGS (2)
  1. DUPIXENT [Suspect]
     Active Substance: DUPILUMAB
     Indication: PRODUCT USE IN UNAPPROVED INDICATION
  2. DUPIXENT [Suspect]
     Active Substance: DUPILUMAB
     Indication: PRODUCT USE IN UNAPPROVED INDICATION
     Dosage: 300 MG
     Route: 058

REACTIONS (2)
  - Injection site pain [Unknown]
  - Therapeutic response decreased [Unknown]
